FAERS Safety Report 11325019 (Version 1)
Quarter: 2015Q3

REPORT INFORMATION
  Report Type: Spontaneous
  Country: US (occurrence: US)
  Receive Date: 20150730
  Receipt Date: 20150730
  Transmission Date: 20151125
  Serious: Yes (Hospitalization, Other)
  Sender: FDA-Public Use
  Company Number: US-TEVA-581930USA

PATIENT
  Age: 83 Year
  Sex: Female
  Weight: 97.61 kg

DRUGS (8)
  1. CRANBERRY. [Concomitant]
     Active Substance: CRANBERRY
  2. COZAAR [Concomitant]
     Active Substance: LOSARTAN POTASSIUM
  3. AZILECT [Suspect]
     Active Substance: RASAGILINE MESYLATE
     Indication: PARKINSON^S DISEASE
     Route: 048
     Dates: start: 201505
  4. LIPITOR [Concomitant]
     Active Substance: ATORVASTATIN CALCIUM
  5. OXYBUTYNIN [Concomitant]
     Active Substance: OXYBUTYNIN
  6. COPAXONE [Concomitant]
     Active Substance: GLATIRAMER ACETATE
     Indication: MULTIPLE SCLEROSIS
  7. DONEPEZIL. [Concomitant]
     Active Substance: DONEPEZIL
  8. METOPROLOL [Concomitant]
     Active Substance: METOPROLOL

REACTIONS (5)
  - Dementia [Unknown]
  - Multiple sclerosis relapse [Recovered/Resolved]
  - Hallucination [Unknown]
  - Confusional state [Unknown]
  - Urinary tract infection [Unknown]

NARRATIVE: CASE EVENT DATE: 20150623
